FAERS Safety Report 23964309 (Version 1)
Quarter: 2024Q2

REPORT INFORMATION
  Report Type: Report from Study
  Country: US (occurrence: US)
  Receive Date: 20240611
  Receipt Date: 20240611
  Transmission Date: 20240716
  Serious: Yes (Other)
  Sender: FDA-Public Use
  Company Number: US-JNJFOC-20240560071

PATIENT
  Sex: Female

DRUGS (3)
  1. MACITENTAN [Suspect]
     Active Substance: MACITENTAN
     Indication: Pulmonary arterial hypertension
     Dosage: TAKING MACITENTAN  1 PILL DAILY
     Route: 048
     Dates: start: 2024
  2. VITAMIN B12 [Concomitant]
     Active Substance: CYANOCOBALAMIN
  3. POTASSIUM [Concomitant]
     Active Substance: POTASSIUM

REACTIONS (7)
  - Cardiac flutter [Recovered/Resolved]
  - Fluid retention [Unknown]
  - Hypersensitivity [Unknown]
  - Sensory disturbance [Recovered/Resolved]
  - Arthralgia [Recovering/Resolving]
  - Arthralgia [Not Recovered/Not Resolved]
  - Productive cough [Not Recovered/Not Resolved]
